FAERS Safety Report 7429867-X (Version None)
Quarter: 2011Q2

REPORT INFORMATION
  Report Type: 
  Country: None (occurrence: None)
  Receive Date: 20110421
  Receipt Date: 20110408
  Transmission Date: 20111010
  Serious: Yes (Other)
  Sender: FDA-Public Use
  Company Number: BR-GENENTECH-306202

PATIENT
  Sex: Female
  Weight: 62 kg

DRUGS (13)
  1. RITUXIMAB [Suspect]
     Dosage: 1000 MG, Q6M
     Route: 042
     Dates: start: 20080813, end: 20080827
  2. RITUXIMAB [Suspect]
     Route: 042
  3. SELOZOK [Concomitant]
     Indication: ARRHYTHMIA
     Dosage: 50 MG, UNK
  4. AMLODIPINE BESYLATE [Concomitant]
     Indication: PRODUCT USED FOR UNKNOWN INDICATION
     Dosage: 5 MG, UNK
  5. FLUNARIZINE [Concomitant]
     Indication: DIZZINESS
     Dosage: 10 MG, UNK
  6. CALTRATE + D [Concomitant]
     Indication: PRODUCT USED FOR UNKNOWN INDICATION
     Dosage: UNK MG, UNK
  7. RITUXIMAB [Suspect]
     Indication: RHEUMATOID ARTHRITIS
     Dosage: UNK
     Route: 042
     Dates: start: 20060101, end: 20060101
  8. PREDSIM [Suspect]
     Indication: PAIN
     Dosage: UNK
     Route: 065
  9. BETASERC [Concomitant]
     Indication: PRODUCT USED FOR UNKNOWN INDICATION
     Dosage: 24 MG, UNK
  10. BALCOR [Concomitant]
     Indication: PRODUCT USED FOR UNKNOWN INDICATION
     Dosage: 90 MG, UNK
  11. MAREVAN [Concomitant]
     Indication: ANTICOAGULANT THERAPY
     Dosage: 5 MG, UNK
  12. METHOTREXATE [Concomitant]
     Indication: PRODUCT USED FOR UNKNOWN INDICATION
     Dosage: 24 MG, UNK
  13. AMLODIPINE BESYLATE [Concomitant]
     Dosage: 10 MG, UNK

REACTIONS (12)
  - ARTHRALGIA [None]
  - NODULE [None]
  - RETINAL ARTERY EMBOLISM [None]
  - COAGULOPATHY [None]
  - BLINDNESS UNILATERAL [None]
  - GAIT DISTURBANCE [None]
  - ARRHYTHMIA [None]
  - PAIN IN EXTREMITY [None]
  - WEIGHT INCREASED [None]
  - RHEUMATOID ARTHRITIS [None]
  - CARDIAC FIBRILLATION [None]
  - TACHYCARDIA [None]
